FAERS Safety Report 18485702 (Version 1)
Quarter: 2020Q4

REPORT INFORMATION
  Report Type: Report from Study
  Country: US (occurrence: US)
  Receive Date: 20201110
  Receipt Date: 20201110
  Transmission Date: 20210114
  Serious: Yes (Hospitalization)
  Sender: FDA-Public Use
  Company Number: US-EISAI MEDICAL RESEARCH-EC-2020-083336

PATIENT
  Sex: Male
  Weight: 108.84 kg

DRUGS (13)
  1. VIRTUSSIN AC [Concomitant]
     Active Substance: CODEINE PHOSPHATE\GUAIFENESIN
  2. ALBUTEROL SULFATE. [Concomitant]
     Active Substance: ALBUTEROL SULFATE
  3. TYLENOL [Concomitant]
     Active Substance: ACETAMINOPHEN
  4. LENVIMA [Suspect]
     Active Substance: LENVATINIB
     Indication: RENAL CANCER
     Dosage: DOSE AND FREQUENCY UNKNOWN
     Route: 048
  5. DIPHENHYDRAMINE. [Concomitant]
     Active Substance: DIPHENHYDRAMINE
  6. CLOBETASOL PROPIONATE. [Concomitant]
     Active Substance: CLOBETASOL PROPIONATE
  7. CABOMETYX [Suspect]
     Active Substance: CABOZANTINIB S-MALATE
     Indication: RENAL CANCER
     Route: 048
     Dates: start: 201908
  8. FERROUS SULFATE. [Concomitant]
     Active Substance: FERROUS SULFATE
  9. CEPHALEXIN. [Concomitant]
     Active Substance: CEPHALEXIN
  10. GUAIFENESIN/CODEINE [Concomitant]
     Active Substance: CODEINE PHOSPHATE\GUAIFENESIN
  11. AFINITOR [Concomitant]
     Active Substance: EVEROLIMUS
  12. ONDANSETRON [Concomitant]
     Active Substance: ONDANSETRON
  13. ALLOPURINOL. [Concomitant]
     Active Substance: ALLOPURINOL

REACTIONS (1)
  - Epistaxis [Unknown]
